FAERS Safety Report 5150509-0 (Version None)
Quarter: 2006Q4

REPORT INFORMATION
  Report Type: 
  Country: None (occurrence: None)
  Receive Date: 20061114
  Receipt Date: 20061107
  Transmission Date: 20070319
  Serious: Yes (Other)
  Sender: FDA-Public Use
  Company Number: ES-GLAXOSMITHKLINE-B0446310A

PATIENT
  Age: 5 Year
  Sex: Female

DRUGS (1)
  1. CEFUROXIME [Suspect]
     Route: 048
     Dates: start: 20061103, end: 20061106

REACTIONS (4)
  - ABDOMINAL PAIN [None]
  - HEADACHE [None]
  - PNEUMONIA [None]
  - PYREXIA [None]
